FAERS Safety Report 25439426 (Version 1)
Quarter: 2025Q2

REPORT INFORMATION
  Report Type: Spontaneous
  Country: US (occurrence: None)
  Receive Date: 20250614
  Receipt Date: 20250614
  Transmission Date: 20250717
  Serious: Yes (Other)
  Sender: FDA-CTU
  Company Number: None

PATIENT
  Sex: Female

DRUGS (1)
  1. PHENTERMINE [Suspect]
     Active Substance: PHENTERMINE
     Indication: Weight decreased
     Dosage: 1 CAPSULE DAILY ORAL
     Route: 048
     Dates: start: 20241120, end: 20250102

REACTIONS (1)
  - Deafness [None]

NARRATIVE: CASE EVENT DATE: 20241229
